FAERS Safety Report 16828216 (Version 1)
Quarter: 2019Q3

REPORT INFORMATION
  Report Type: Spontaneous
  Country: BR (occurrence: BR)
  Receive Date: 20190919
  Receipt Date: 20190919
  Transmission Date: 20191005
  Serious: Yes (Other)
  Sender: FDA-Public Use
  Company Number: BR-GALDERMA-BR19057972

PATIENT
  Sex: Female

DRUGS (1)
  1. EPIDUO [Suspect]
     Active Substance: ADAPALENE\BENZOYL PEROXIDE
     Indication: PRODUCT USED FOR UNKNOWN INDICATION
     Dosage: 30G
     Route: 061

REACTIONS (5)
  - Skin disorder [Recovering/Resolving]
  - Application site pain [Recovering/Resolving]
  - Application site warmth [Recovering/Resolving]
  - Application site exfoliation [Recovering/Resolving]
  - Application site hypersensitivity [Recovering/Resolving]
